FAERS Safety Report 5014767-5 (Version None)
Quarter: 2006Q2

REPORT INFORMATION
  Report Type: 
  Country: None (occurrence: None)
  Receive Date: 20060531
  Receipt Date: 20060517
  Transmission Date: 20061013
  Serious: Yes (Death)
  Sender: FDA-Public Use
  Company Number: NL-ROCHE-448276

PATIENT
  Age: 75 Year
  Sex: Male

DRUGS (8)
  1. CAPECITABINE [Suspect]
     Indication: COLORECTAL CANCER
     Route: 048
     Dates: start: 20051208
  2. AVASTIN [Suspect]
     Indication: COLORECTAL CANCER
     Route: 042
     Dates: start: 20051208, end: 20051208
  3. OXALIPLATIN [Suspect]
     Indication: COLORECTAL CANCER
     Route: 042
     Dates: start: 20051208, end: 20051208
  4. ERBITUX [Suspect]
     Indication: COLORECTAL CANCER
     Route: 042
     Dates: start: 20051208, end: 20051208
  5. ERBITUX [Suspect]
     Route: 042
  6. METOPROLOL [Concomitant]
  7. HYDROCHLOROTHIAZIDE [Concomitant]
  8. DEXAMETHASONE TAB [Concomitant]

REACTIONS (1)
  - SEPSIS [None]
